FAERS Safety Report 19035000 (Version 1)
Quarter: 2021Q1

REPORT INFORMATION
  Report Type: Spontaneous
  Country: CN (occurrence: CN)
  Receive Date: 20210320
  Receipt Date: 20210320
  Transmission Date: 20210420
  Serious: Yes (Other)
  Sender: FDA-Public Use
  Company Number: CN-ASTRAZENECA-2021A163846

PATIENT
  Age: 78 Year
  Sex: Female

DRUGS (3)
  1. TERBUTALINE SULFATE. [Suspect]
     Active Substance: TERBUTALINE SULFATE
     Indication: SPUTUM RETENTION
     Route: 055
  2. FLUIMUCIL [Suspect]
     Active Substance: ACETYLCYSTEINE
     Indication: SPUTUM RETENTION
     Route: 065
  3. BUDESONIDE. [Suspect]
     Active Substance: BUDESONIDE
     Indication: SPUTUM RETENTION
     Route: 055

REACTIONS (1)
  - Atrial fibrillation [Recovered/Resolved]
